FAERS Safety Report 15247275 (Version 5)
Quarter: 2019Q1

REPORT INFORMATION
  Report Type: Report from Study
  Country: None (occurrence: ES)
  Receive Date: 20180807
  Receipt Date: 20190116
  Transmission Date: 20190417
  Serious: Yes (Other)
  Sender: FDA-Public Use
  Company Number: ES-ABBVIE-18S-144-2439984-00

PATIENT
  Sex: Male
  Weight: 93 kg

DRUGS (2)
  1. DUODOPA [Suspect]
     Active Substance: CARBIDOPA\LEVODOPA
     Indication: PARKINSON^S DISEASE
     Dosage: MD: 6+3 ML CD: 4.7 ML ED: 3.5 ML
     Route: 050
     Dates: start: 20150216, end: 2018
  2. DUODOPA [Suspect]
     Active Substance: CARBIDOPA\LEVODOPA
     Dosage: MORNING DOSE:9 ML?CONTINUOS DOSE: 4.5 ML/H?EXTRA DOSE:3 ML/H
     Route: 050
     Dates: start: 2018

REACTIONS (3)
  - Paraesthesia [Not Recovered/Not Resolved]
  - Carpal tunnel syndrome [Not Recovered/Not Resolved]
  - Polyneuropathy chronic [Not Recovered/Not Resolved]

NARRATIVE: CASE EVENT DATE: 2015
